FAERS Safety Report 4853789-1 (Version None)
Quarter: 2005Q4

REPORT INFORMATION
  Report Type: 
  Country: None (occurrence: None)
  Receive Date: 20051212
  Receipt Date: 20051128
  Transmission Date: 20060501
  Serious: Yes (Hospitalization, Other)
  Sender: FDA-Public Use
  Company Number: 2005161488

PATIENT
  Sex: Male
  Weight: 96.6162 kg

DRUGS (1)
  1. VIAGRA [Suspect]
     Indication: ILL-DEFINED DISORDER
     Dosage: 50 MG

REACTIONS (12)
  - BURNS THIRD DEGREE [None]
  - CHEST PAIN [None]
  - ESCHERICHIA INFECTION [None]
  - HEADACHE [None]
  - HYPERTENSION [None]
  - LIMB INJURY [None]
  - OEDEMA PERIPHERAL [None]
  - PHOTOSENSITIVITY REACTION [None]
  - SKIN DISCOLOURATION [None]
  - STAPHYLOCOCCAL INFECTION [None]
  - WEIGHT DECREASED [None]
  - WOUND SECRETION [None]
